FAERS Safety Report 9618721 (Version 1)
Quarter: 2013Q4

REPORT INFORMATION
  Report Type: Spontaneous
  Country: BR (occurrence: BR)
  Receive Date: 20131014
  Receipt Date: 20131014
  Transmission Date: 20140711
  Serious: Yes (Other)
  Sender: FDA-Public Use
  Company Number: BR-ACCORD-019858

PATIENT
  Age: 52 Year
  Sex: Female
  Weight: 89 kg

DRUGS (13)
  1. HIDROCORTISONA [Concomitant]
     Dates: start: 20130924, end: 20130924
  2. DROPROPIZINE [Concomitant]
     Dates: start: 20130924, end: 20130924
  3. NAUSETRON [Concomitant]
     Route: 042
     Dates: start: 20130924, end: 20130924
  4. PACLITAXEL [Suspect]
     Indication: CHEMOTHERAPY
     Route: 042
     Dates: start: 20130924, end: 20130924
  5. DRAMIN B-6 DL [Concomitant]
     Dates: start: 20130924, end: 20130924
  6. RANITIDINE [Concomitant]
     Route: 042
     Dates: start: 20130924, end: 20130924
  7. TRAMADOL [Concomitant]
     Dates: start: 20130924, end: 20130924
  8. DIPIRONA [Concomitant]
     Dates: start: 20130924, end: 20130924
  9. DEXAMETHASONE [Concomitant]
     Route: 042
     Dates: start: 20130924, end: 20130924
  10. DIFENIDRIN [Concomitant]
     Route: 042
     Dates: start: 20130924, end: 20130924
  11. OMEPRAZOL [Concomitant]
     Dates: start: 20130924, end: 20130924
  12. CETOPROFENO [Concomitant]
     Dates: start: 20130924, end: 20130924
  13. CODEINA [Concomitant]
     Dates: start: 20130924, end: 20130924

REACTIONS (4)
  - Tachycardia [Recovered/Resolved]
  - Hypertension [Recovered/Resolved]
  - Dyspnoea [Recovered/Resolved]
  - Oxygen saturation decreased [Recovered/Resolved]
